FAERS Safety Report 10200844 (Version 2)
Quarter: 2014Q4

REPORT INFORMATION
  Report Type: Spontaneous
  Country: JP (occurrence: JP)
  Receive Date: 20140528
  Receipt Date: 20141126
  Transmission Date: 20150528
  Serious: Yes (Hospitalization)
  Sender: FDA-Public Use
  Company Number: JP-NOVOPROD-410521

PATIENT
  Age: 20 Year
  Sex: Male

DRUGS (7)
  1. TRESIBA CHU FLEXTOUCH [Suspect]
     Active Substance: INSULIN DEGLUDEC
     Dosage: 1500 IU, QD
     Route: 058
     Dates: start: 20140512, end: 201405
  2. TRESIBA CHU FLEXTOUCH [Suspect]
     Active Substance: INSULIN DEGLUDEC
     Indication: TYPE 1 DIABETES MELLITUS
     Dosage: 18 IU, QD
     Route: 058
     Dates: start: 201307
  3. NOVORAPID [Suspect]
     Active Substance: INSULIN ASPART
     Indication: TYPE 1 DIABETES MELLITUS
     Dosage: 18 IU, QD
     Route: 058
     Dates: start: 200705
  4. NOVORAPID [Suspect]
     Active Substance: INSULIN ASPART
     Dosage: 900 IU, QD
     Route: 058
     Dates: start: 20140512, end: 201405
  5. NOVORAPID [Suspect]
     Active Substance: INSULIN ASPART
     Dosage: UNKNOWN (LOW DOSE)
     Route: 058
     Dates: start: 20140518
  6. NOVORAPID [Suspect]
     Active Substance: INSULIN ASPART
     Dosage: UNK
     Route: 058
  7. TRESIBA CHU FLEXTOUCH [Suspect]
     Active Substance: INSULIN DEGLUDEC
     Dosage: UNK
     Route: 058

REACTIONS (4)
  - Hepatic function abnormal [Recovering/Resolving]
  - Intentional overdose [Unknown]
  - Hypoglycaemia [Recovering/Resolving]
  - Suicide attempt [Unknown]

NARRATIVE: CASE EVENT DATE: 20140512
